FAERS Safety Report 9908896 (Version 1)
Quarter: 2014Q1

REPORT INFORMATION
  Report Type: Spontaneous
  Country: US (occurrence: None)
  Receive Date: 20140212
  Receipt Date: 20140212
  Transmission Date: 20141002
  Serious: Yes (Other)
  Sender: FDA-Public Use
  Company Number: 2014-US-001097

PATIENT
  Age: 54 Year
  Sex: Female

DRUGS (1)
  1. XYREM (SODIUM OXYBATE) ORAL SOLUTION, 500MG/ML [Suspect]
     Route: 048
     Dates: start: 201212

REACTIONS (6)
  - Gait disturbance [None]
  - Fall [None]
  - Fatigue [None]
  - Type 2 diabetes mellitus [None]
  - Contusion [None]
  - Pain [None]
